FAERS Safety Report 24837211 (Version 1)
Quarter: 2025Q1

REPORT INFORMATION
  Report Type: Report from Study
  Country: DE (occurrence: DE)
  Receive Date: 20250113
  Receipt Date: 20250113
  Transmission Date: 20250409
  Serious: Yes (Hospitalization, Other)
  Sender: VERTEX
  Company Number: DE-VERTEX PHARMACEUTICALS-2024-014643

PATIENT
  Age: 32 Year
  Sex: Male
  Weight: 73 kg

DRUGS (7)
  1. ELEXACAFTOR\IVACAFTOR\TEZACAFTOR [Suspect]
     Active Substance: ELEXACAFTOR\IVACAFTOR\TEZACAFTOR
     Indication: Cystic fibrosis
     Route: 048
     Dates: start: 20201001, end: 20220713
  2. ELEXACAFTOR\IVACAFTOR\TEZACAFTOR [Suspect]
     Active Substance: ELEXACAFTOR\IVACAFTOR\TEZACAFTOR
     Route: 048
     Dates: start: 20221001, end: 20221119
  3. ELEXACAFTOR\IVACAFTOR\TEZACAFTOR [Suspect]
     Active Substance: ELEXACAFTOR\IVACAFTOR\TEZACAFTOR
     Route: 048
     Dates: start: 20221205
  4. KALYDECO [Suspect]
     Active Substance: IVACAFTOR
     Indication: Cystic fibrosis
     Route: 048
     Dates: start: 20201001, end: 20220713
  5. KALYDECO [Suspect]
     Active Substance: IVACAFTOR
     Route: 048
     Dates: start: 20221001, end: 20221119
  6. KALYDECO [Suspect]
     Active Substance: IVACAFTOR
     Route: 048
     Dates: start: 20221205
  7. SPIRONOLACTONE [Concomitant]
     Active Substance: SPIRONOLACTONE

REACTIONS (3)
  - Hepatic cirrhosis [Recovered/Resolved]
  - Post procedural haemorrhage [Recovered/Resolved]
  - Hepatic haematoma [Recovered/Resolved]

NARRATIVE: CASE EVENT DATE: 20221110
